FAERS Safety Report 14477327 (Version 1)
Quarter: 2018Q1

REPORT INFORMATION
  Report Type: Report from Study
  Country: US (occurrence: US)
  Receive Date: 20180201
  Receipt Date: 20180201
  Transmission Date: 20180509
  Serious: No
  Sender: FDA-Public Use
  Company Number: US-EXELIXIS-CABO-17010047

PATIENT
  Age: 58 Year
  Sex: Male

DRUGS (1)
  1. CABOMETYX [Suspect]
     Active Substance: CABOZANTINIB S-MALATE
     Indication: RETROPERITONEAL NEOPLASM METASTATIC
     Dosage: 20 MG, QD
     Route: 048
     Dates: start: 20170602

REACTIONS (3)
  - Lacrimation increased [Unknown]
  - Dry skin [Unknown]
  - Off label use [Unknown]

NARRATIVE: CASE EVENT DATE: 20170702
